FAERS Safety Report 19956578 (Version 1)
Quarter: 2021Q4

REPORT INFORMATION
  Report Type: Spontaneous
  Country: CH (occurrence: CH)
  Receive Date: 20211014
  Receipt Date: 20211014
  Transmission Date: 20220303
  Serious: Yes (Death)
  Sender: FDA-Public Use
  Company Number: CH-BAYER-2021A227940

PATIENT

DRUGS (1)
  1. EYLEA [Suspect]
     Active Substance: AFLIBERCEPT
     Indication: Age-related macular degeneration
     Dosage: DOSE, FREQUENCY AND TOTAL NUMBER OF DOSES UNKNOWN
     Dates: start: 20180917

REACTIONS (1)
  - Death [Fatal]

NARRATIVE: CASE EVENT DATE: 20210923
